FAERS Safety Report 7248886-X (Version None)
Quarter: 2011Q1

REPORT INFORMATION
  Report Type: 
  Country: None (occurrence: None)
  Receive Date: 20110128
  Receipt Date: 20101004
  Transmission Date: 20110831
  Serious: Yes (Other)
  Sender: FDA-Public Use
  Company Number: US-BAYER-200943267NA

PATIENT
  Sex: Female
  Weight: 64 kg

DRUGS (12)
  1. ZEGERID [Concomitant]
     Dosage: UNK
     Route: 048
     Dates: start: 20071114
  2. YAZ [Suspect]
     Indication: CONTRACEPTION
     Route: 048
  3. ADVIL [Concomitant]
     Route: 048
  4. HYDROCODONE BITARTRATE AND ACETAMINOPHEN [Concomitant]
     Indication: PAIN
     Dosage: UNK UNK, PRN
     Route: 048
     Dates: start: 20071123
  5. PROPOXYPHENE COMPOUND [Concomitant]
     Indication: PAIN
     Dosage: UNK UNK, PRN
     Route: 048
     Dates: start: 20071203
  6. TYLENOL-500 [Concomitant]
     Route: 048
  7. YASMIN [Suspect]
     Indication: CONTRACEPTION
     Dosage: UNK UNK, QD
     Route: 048
     Dates: start: 20021001, end: 20080908
  8. OCELLA [Suspect]
     Indication: PREMENSTRUAL SYNDROME
     Route: 048
     Dates: start: 20081201, end: 20090817
  9. SERTRALINE HYDROCHLORIDE [Concomitant]
     Dosage: 50 MG, QD
     Route: 048
     Dates: start: 20071109
  10. OCELLA [Suspect]
     Indication: CONTRACEPTION
  11. TRAMADOL HCL [Concomitant]
     Dosage: QD-PRN
     Route: 048
  12. ULTRAM ER [Concomitant]
     Indication: BACK PAIN
     Dosage: 100 MG, QD
     Route: 048
     Dates: start: 20071101

REACTIONS (3)
  - BILIARY DYSKINESIA [None]
  - PAIN [None]
  - GALLBLADDER CHOLESTEROLOSIS [None]
